FAERS Safety Report 5444146-8 (Version None)
Quarter: 2007Q3

REPORT INFORMATION
  Report Type: 
  Country: None (occurrence: None)
  Receive Date: 20070904
  Receipt Date: 20070904
  Transmission Date: 20080115
  Serious: No
  Sender: FDA-Public Use
  Company Number: None

PATIENT

DRUGS (6)
  1. BLEOMYCIN [Suspect]
     Dosage: 30 UNITS
  2. ZANOSAR [Suspect]
     Dosage: 1 GM
  3. IDARUBICIN HCL [Suspect]
     Dosage: 10 MG/ML
  4. VINORELBINE [Suspect]
     Dosage: 50 MG/5ML
  5. FLUDARABINE PHOSPHATE [Suspect]
     Dosage: 50 MG
  6. MITOXANTRONE [Suspect]
     Dosage: 20 MG/10ML

REACTIONS (1)
  - MEDICATION ERROR [None]
